FAERS Safety Report 6122310-2 (Version None)
Quarter: 2009Q1

REPORT INFORMATION
  Report Type: 
  Country: None (occurrence: None)
  Receive Date: 20090318
  Receipt Date: 20090310
  Transmission Date: 20090719
  Serious: Yes (Other)
  Sender: FDA-Public Use
  Company Number: JP-ASTRAZENECA-2008AP09683

PATIENT
  Age: 19 Year
  Sex: Female

DRUGS (3)
  1. PULMICORT [Suspect]
     Indication: ASTHMA
     Route: 055
     Dates: start: 20061113, end: 20070801
  2. PULMICORT [Suspect]
     Route: 055
  3. SEREVENT [Concomitant]
     Indication: ASTHMA
     Route: 055
     Dates: start: 20061113

REACTIONS (1)
  - AMENORRHOEA [None]
